FAERS Safety Report 8051218-0 (Version None)
Quarter: 2012Q1

REPORT INFORMATION
  Report Type: 
  Country: None (occurrence: None)
  Receive Date: 20120117
  Receipt Date: 20120111
  Transmission Date: 20120608
  Serious: Yes (Other)
  Sender: FDA-Public Use
  Company Number: US-BAYER-2012-004442

PATIENT
  Age: 16 Year
  Sex: Female
  Weight: 54.422 kg

DRUGS (1)
  1. MIDOL MENSTRUAL COMPLETE CAPLETS [Suspect]
     Dosage: 2 DF, ONCE, BOTTLE COUNT 40S
     Dates: start: 20120111

REACTIONS (9)
  - ABDOMINAL PAIN UPPER [None]
  - DIZZINESS [None]
  - HYPOAESTHESIA [None]
  - ANXIETY [None]
  - ABNORMAL BEHAVIOUR [None]
  - DYSPNOEA [None]
  - PSYCHOMOTOR HYPERACTIVITY [None]
  - PANIC ATTACK [None]
  - APHASIA [None]
